FAERS Safety Report 18650989 (Version 1)
Quarter: 2020Q4

REPORT INFORMATION
  Report Type: Spontaneous
  Country: CN (occurrence: CN)
  Receive Date: 20201222
  Receipt Date: 20201222
  Transmission Date: 20210114
  Serious: Yes (Other)
  Sender: FDA-Public Use
  Company Number: CN-PFIZER INC-2020494427

PATIENT
  Age: 60 Year
  Sex: Male
  Weight: 70 kg

DRUGS (1)
  1. METHYLPREDNISOLONE SODIUM SUCCINATE. [Suspect]
     Active Substance: METHYLPREDNISOLONE SODIUM SUCCINATE
     Indication: CEREBRAL INFARCTION
     Dosage: 0.5 G, 1X/DAY
     Route: 041
     Dates: start: 20201207

REACTIONS (12)
  - Blood glucose increased [Unknown]
  - Depressed mood [Unknown]
  - Extensor plantar response [Unknown]
  - Dysarthria [Unknown]
  - Dysmorphism [Unknown]
  - Off label use [Unknown]
  - Erythema [Unknown]
  - Tongue disorder [Unknown]
  - Poor quality sleep [Unknown]
  - Blood pressure increased [Unknown]
  - Hyporeflexia [Unknown]
  - Hypoaesthesia [Unknown]

NARRATIVE: CASE EVENT DATE: 202012
